FAERS Safety Report 15883556 (Version 2)
Quarter: 2020Q1

REPORT INFORMATION
  Report Type: Spontaneous
  Country: CN (occurrence: CN)
  Receive Date: 20190129
  Receipt Date: 20200316
  Transmission Date: 20200409
  Serious: Yes (Other)
  Sender: FDA-Public Use
  Company Number: CN-ROCHE-2251742

PATIENT
  Age: 54 Year
  Sex: Male

DRUGS (24)
  1. CYCLOPHOSPHAMIDE. [Concomitant]
     Active Substance: CYCLOPHOSPHAMIDE
     Dosage: ON DAY 5
     Route: 065
     Dates: start: 20161120, end: 20170310
  2. CISPLATIN. [Concomitant]
     Active Substance: CISPLATIN
     Dosage: FROM DAY 1 TO DAY 3
     Route: 065
     Dates: start: 20171128
  3. FLUDARABINE [Concomitant]
     Active Substance: FLUDARABINE PHOSPHATE
  4. EPIRUBICIN [Concomitant]
     Active Substance: EPIRUBICIN
     Dosage: FROM DAY 1 TO DAY 4
     Route: 065
     Dates: start: 20161028
  5. ETOPOSIDE. [Concomitant]
     Active Substance: ETOPOSIDE
     Dosage: FROM DAY 1 TO DAY 4
     Route: 065
     Dates: start: 20161120, end: 20170310
  6. VINDESINE [Concomitant]
     Active Substance: VINDESINE
     Indication: B-CELL LYMPHOMA
     Dosage: FROM DAY 1 TO DAY 4
     Route: 065
     Dates: start: 20161028
  7. VINDESINE [Concomitant]
     Active Substance: VINDESINE
     Dosage: FROM DAY 1 TO DAY 4
     Route: 065
     Dates: start: 20161120, end: 20170310
  8. DEXAMETHASONE. [Concomitant]
     Active Substance: DEXAMETHASONE
     Dosage: FROM DAY 1 TO DAY 5
     Route: 065
     Dates: start: 20161120, end: 20170310
  9. CYTARABINE. [Concomitant]
     Active Substance: CYTARABINE
     Dosage: FOR 4 TIMES
     Route: 037
  10. CYTARABINE. [Concomitant]
     Active Substance: CYTARABINE
     Dosage: FROM DAY 3 TO DAY 6
     Route: 065
     Dates: start: 20170503
  11. METHOTREXATE. [Concomitant]
     Active Substance: METHOTREXATE
     Dosage: FOR 4 TIMES
     Route: 037
  12. EPIRUBICIN [Concomitant]
     Active Substance: EPIRUBICIN
     Dosage: FROM DAY 1 TO DAY 4
     Route: 065
     Dates: start: 20161120, end: 20170310
  13. DEXAMETHASONE. [Concomitant]
     Active Substance: DEXAMETHASONE
     Dosage: FROM DAY 1 TO DAY 4
     Route: 065
     Dates: start: 20171128
  14. MABTHERA [Suspect]
     Active Substance: RITUXIMAB
     Indication: B-CELL LYMPHOMA
     Dosage: ON DAY 0
     Route: 065
     Dates: start: 20161028
  15. DEXAMETHASONE. [Concomitant]
     Active Substance: DEXAMETHASONE
     Indication: B-CELL LYMPHOMA
     Dosage: FROM DAY 1 TO DAY 5
     Route: 065
     Dates: start: 20161028
  16. GEMCITABINE. [Concomitant]
     Active Substance: GEMCITABINE
     Dosage: ON DAY 1 AND DAY 8
     Route: 065
     Dates: start: 20171128
  17. ETOPOSIDE. [Concomitant]
     Active Substance: ETOPOSIDE
     Dosage: FROM DAY 1 TO DAY 4
     Route: 065
     Dates: start: 20161028
  18. ETOPOSIDE. [Concomitant]
     Active Substance: ETOPOSIDE
     Dosage: FROM DAY 3 TO DAY 6
     Route: 065
     Dates: start: 20170503
  19. CYCLOPHOSPHAMIDE. [Concomitant]
     Active Substance: CYCLOPHOSPHAMIDE
     Dosage: ON DAY 5
     Route: 065
     Dates: start: 20161028
  20. CARMUSTINE. [Concomitant]
     Active Substance: CARMUSTINE
     Dosage: ON DAY 7
     Route: 065
     Dates: start: 20170503
  21. DEXAMETHASONE. [Concomitant]
     Active Substance: DEXAMETHASONE
     Dosage: FOR 4 TIMES
     Route: 037
  22. MABTHERA [Suspect]
     Active Substance: RITUXIMAB
     Dosage: ON DAY 0
     Route: 065
     Dates: start: 20161120, end: 20170310
  23. DEXAMETHASONE. [Concomitant]
     Active Substance: DEXAMETHASONE
     Dosage: FROM DAY 1 TO DAY 4
     Route: 065
     Dates: start: 20171128
  24. MELPHALAN. [Concomitant]
     Active Substance: MELPHALAN
     Dosage: ON DAY 2
     Route: 065
     Dates: start: 20170503

REACTIONS (5)
  - Bone marrow failure [Unknown]
  - Cerebral atrophy [Unknown]
  - Malformation venous [Unknown]
  - Chronic gastritis [Unknown]
  - Pulmonary mass [Unknown]

NARRATIVE: CASE EVENT DATE: 2017
